FAERS Safety Report 22146762 (Version 1)
Quarter: 2023Q1

REPORT INFORMATION
  Report Type: Spontaneous
  Country: FR (occurrence: FR)
  Receive Date: 20230328
  Receipt Date: 20230328
  Transmission Date: 20230417
  Serious: Yes (Hospitalization)
  Sender: FDA-Public Use
  Company Number: None

PATIENT
  Age: 55 Year
  Sex: Male

DRUGS (3)
  1. CARBOPLATIN [Suspect]
     Active Substance: CARBOPLATIN
     Indication: Rectal cancer
     Dosage: 630 MG, 1X/DAY
     Route: 042
     Dates: start: 20230301, end: 20230301
  2. TECENTRIQ [Suspect]
     Active Substance: ATEZOLIZUMAB
     Indication: Rectal cancer
     Dosage: 1200 MG, EVERY 3 WEEKS
     Route: 042
     Dates: start: 20230301, end: 20230301
  3. ETOPOSIDE [Suspect]
     Active Substance: ETOPOSIDE
     Indication: Rectal cancer
     Dosage: 200 MG, 1X/DAY
     Route: 042
     Dates: start: 20230301, end: 20230303

REACTIONS (2)
  - Immune thrombocytopenia [Recovered/Resolved]
  - Off label use [Unknown]

NARRATIVE: CASE EVENT DATE: 20230301
